FAERS Safety Report 21813261 (Version 4)
Quarter: 2023Q1

REPORT INFORMATION
  Report Type: Spontaneous
  Country: US (occurrence: US)
  Receive Date: 20230103
  Receipt Date: 20230224
  Transmission Date: 20230417
  Serious: No
  Sender: FDA-Public Use
  Company Number: US-JNJFOC-20230101696

PATIENT
  Age: 69 Year
  Sex: Female

DRUGS (6)
  1. XARELTO [Suspect]
     Active Substance: RIVAROXABAN
     Indication: Arrhythmia
     Route: 048
     Dates: start: 20221212, end: 20221230
  2. LOSARTAN [Concomitant]
     Active Substance: LOSARTAN
     Indication: Hypertension
  3. PRAVASTATIN [Concomitant]
     Active Substance: PRAVASTATIN
     Indication: Nephropathy
  4. ACYCLOVIR [Concomitant]
     Active Substance: ACYCLOVIR
  5. OMEPRAZOLE [Concomitant]
     Active Substance: OMEPRAZOLE
     Indication: Gastrooesophageal reflux disease
  6. METOPROLOL [Concomitant]
     Active Substance: METOPROLOL
     Indication: Arrhythmia
     Dates: start: 20221219

REACTIONS (7)
  - Rash pruritic [Recovering/Resolving]
  - Product label issue [Unknown]
  - Off label use [Unknown]
  - Dry skin [Unknown]
  - Skin fissures [Unknown]
  - Insomnia [Unknown]
  - Skin discolouration [Unknown]

NARRATIVE: CASE EVENT DATE: 20221222
